FAERS Safety Report 8386036-7 (Version None)
Quarter: 2012Q2

REPORT INFORMATION
  Report Type: 
  Country: None (occurrence: None)
  Receive Date: 20120525
  Receipt Date: 20120521
  Transmission Date: 20120825
  Serious: No
  Sender: FDA-Public Use
  Company Number: US-PFIZER INC-2012110318

PATIENT
  Sex: Female

DRUGS (3)
  1. EFFEXOR XR [Suspect]
     Dosage: UNK
  2. TRAZODONE HCL [Interacting]
     Dosage: UNK
  3. VISTARIL [Interacting]
     Dosage: UNK

REACTIONS (2)
  - TREMOR [None]
  - DRUG INTERACTION [None]
